FAERS Safety Report 19481481 (Version 3)
Quarter: 2021Q3

REPORT INFORMATION
  Report Type: Spontaneous
  Country: US (occurrence: US)
  Receive Date: 20210701
  Receipt Date: 20210913
  Transmission Date: 20211014
  Serious: No
  Sender: FDA-Public Use
  Company Number: US-ASTRAZENECA-2021A526633

PATIENT
  Age: 925 Month
  Sex: Male
  Weight: 101.6 kg

DRUGS (2)
  1. BYDUREON BCISE [Suspect]
     Active Substance: EXENATIDE
     Indication: GLYCOSYLATED HAEMOGLOBIN DECREASED
     Route: 058
     Dates: start: 202105
  2. BYDUREON [Suspect]
     Active Substance: EXENATIDE
     Dosage: UNKNOWN
     Route: 065

REACTIONS (6)
  - Agitation [Unknown]
  - Glycosylated haemoglobin increased [Not Recovered/Not Resolved]
  - Device use issue [Unknown]
  - Contusion [Not Recovered/Not Resolved]
  - Product packaging quantity issue [Unknown]
  - Product physical issue [Unknown]

NARRATIVE: CASE EVENT DATE: 2021
